FAERS Safety Report 9248761 (Version 2)
Quarter: 2013Q2

REPORT INFORMATION
  Report Type: Spontaneous
  Country: RS (occurrence: RS)
  Receive Date: 20130423
  Receipt Date: 20130426
  Transmission Date: 20140414
  Serious: Yes (Other)
  Sender: FDA-Public Use
  Company Number: RS-ROCHE-1215975

PATIENT
  Age: 24 Year
  Sex: Male
  Weight: 65 kg

DRUGS (8)
  1. PEGASYS [Suspect]
     Indication: CHRONIC HEPATITIS C
     Route: 065
     Dates: start: 201302
  2. COPEGUS [Suspect]
     Indication: CHRONIC HEPATITIS C
     Route: 065
     Dates: start: 201302
  3. LAMICTAL [Concomitant]
     Indication: BORDERLINE PERSONALITY DISORDER
     Route: 065
  4. LAMICTAL [Concomitant]
     Indication: MAJOR DEPRESSION
  5. LAMICTAL [Concomitant]
     Indication: DRUG DEPENDENCE
  6. TOLVON [Concomitant]
     Indication: MAJOR DEPRESSION
     Route: 065
     Dates: end: 20130307
  7. TOLVON [Concomitant]
     Indication: DRUG DEPENDENCE
  8. TOLVON [Concomitant]
     Indication: BORDERLINE PERSONALITY DISORDER

REACTIONS (6)
  - Anxiety [Recovering/Resolving]
  - Insomnia [Recovering/Resolving]
  - Emotional distress [Recovering/Resolving]
  - Depression [Recovering/Resolving]
  - Confusional state [Recovering/Resolving]
  - Influenza like illness [Recovering/Resolving]
